FAERS Safety Report 4741740-4 (Version None)
Quarter: 2005Q3

REPORT INFORMATION
  Report Type: 
  Country: None (occurrence: None)
  Receive Date: 20050808
  Receipt Date: 20050726
  Transmission Date: 20060218
  Serious: Yes (Hospitalization, Other)
  Sender: FDA-Public Use
  Company Number: 430011M05DEU

PATIENT
  Age: 77 Year
  Sex: Female

DRUGS (1)
  1. NOVANTRONE [Suspect]
     Indication: DEMYELINATING POLYNEUROPATHY
     Dosage: SEE IMAGE; 1 CYCLE
     Dates: start: 20050420

REACTIONS (5)
  - CORONARY ARTERY DISEASE [None]
  - EXCITABILITY [None]
  - MYOCARDIAL INFARCTION [None]
  - VENOUS STASIS [None]
  - WHITE BLOOD CELL COUNT DECREASED [None]
